FAERS Safety Report 8305543-6 (Version None)
Quarter: 2012Q2

REPORT INFORMATION
  Report Type: 
  Country: None (occurrence: None)
  Receive Date: 20120423
  Receipt Date: 20120416
  Transmission Date: 20120825
  Serious: Yes (Hospitalization)
  Sender: FDA-Public Use
  Company Number: FR-MERCK-1203USA01524

PATIENT
  Age: 65 Year
  Sex: Female

DRUGS (13)
  1. PAROXETINE HYDROCHLORIDE [Concomitant]
     Route: 065
  2. IFOSFAMIDE [Suspect]
     Route: 042
     Dates: start: 20120209, end: 20120211
  3. ONDANSETRON [Concomitant]
     Route: 042
     Dates: start: 20110701
  4. TENORMIN [Concomitant]
     Route: 065
  5. ACETAMINOPHEN [Concomitant]
     Indication: BACK PAIN
     Route: 065
  6. LEVOTHYROXINE SODIUM [Concomitant]
     Route: 065
  7. NITRODERM [Concomitant]
     Route: 065
  8. MESNA [Concomitant]
     Route: 042
     Dates: start: 20120209
  9. EMEND [Suspect]
     Route: 048
     Dates: start: 20120209, end: 20120211
  10. PRIMPERAN TAB [Concomitant]
     Route: 042
     Dates: start: 20110701
  11. INSULIN [Concomitant]
     Route: 065
  12. ASPIRIN [Concomitant]
     Route: 065
  13. OXYCODONE [Concomitant]
     Indication: BACK PAIN
     Route: 065

REACTIONS (2)
  - ENCEPHALOPATHY [None]
  - DRUG INTERACTION [None]
